FAERS Safety Report 5806942-4 (Version None)
Quarter: 2008Q3

REPORT INFORMATION
  Report Type: 
  Country: None (occurrence: None)
  Receive Date: 20080711
  Receipt Date: 20080703
  Transmission Date: 20090109
  Serious: Yes (Hospitalization)
  Sender: FDA-Public Use
  Company Number: GB-ROCHE-570198

PATIENT
  Sex: Female
  Weight: 102 kg

DRUGS (5)
  1. ORLISTAT [Suspect]
     Indication: OBESITY
     Route: 048
     Dates: start: 20071005
  2. ENALAPRIL MALEATE [Concomitant]
     Indication: HYPERTENSION
     Route: 048
     Dates: start: 20020720
  3. CLOMIPRAMINE HYDROCHLORIDE [Concomitant]
     Indication: DEPRESSION
     Dosage: THREE CAPSULES AT NIGHT
     Route: 048
     Dates: start: 19980101
  4. ACETAMINOPHEN W/ CODEINE [Concomitant]
     Dosage: 30/500MG CAPLET TABLETS.  TAKE 2 TABLETS EVERY FOUR TO SIX HOURS
     Route: 048
     Dates: start: 20040101
  5. DIAZEPAM [Concomitant]
     Indication: ANXIETY
     Dosage: ONE TABLET UP TO THREE TIMES A DAY IF REQUIRED.  FOR MUSCLE SPASM.
     Route: 048
     Dates: start: 20040101

REACTIONS (5)
  - CARPAL TUNNEL SYNDROME [None]
  - FALL [None]
  - FEMUR FRACTURE [None]
  - JOINT INSTABILITY [None]
  - MUSCULOSKELETAL PAIN [None]
